FAERS Safety Report 9207552 (Version 2)
Quarter: 2013Q2

REPORT INFORMATION
  Report Type: Spontaneous
  Country: JP (occurrence: JP)
  Receive Date: 20130403
  Receipt Date: 20130410
  Transmission Date: 20140414
  Serious: Yes (Hospitalization)
  Sender: FDA-Public Use
  Company Number: JP-PFIZER INC-2013104340

PATIENT
  Age: 83 Year
  Sex: Male

DRUGS (1)
  1. ANCARON [Suspect]
     Indication: VENTRICULAR TACHYCARDIA
     Dosage: 100 MG, UNK
     Route: 048
     Dates: start: 20121030

REACTIONS (3)
  - Electrocardiogram T wave abnormal [Recovering/Resolving]
  - Cardiac failure [Recovering/Resolving]
  - Electrocardiogram QT prolonged [Unknown]
